FAERS Safety Report 20338117 (Version 2)
Quarter: 2022Q1

REPORT INFORMATION
  Report Type: Report from Study
  Country: PL (occurrence: None)
  Receive Date: 20220115
  Receipt Date: 20220207
  Transmission Date: 20220423
  Serious: Yes (Hospitalization)
  Sender: FDA-Public Use
  Company Number: PL-ROCHE-3000600

PATIENT
  Age: 71 Year
  Sex: Male
  Weight: 61 kg

DRUGS (8)
  1. ATEZOLIZUMAB [Suspect]
     Active Substance: ATEZOLIZUMAB
     Indication: Renal cell carcinoma
     Dosage: ON 21/DEC/2021, HE RECEIVED MOST RECENT DOSE OF ATEZOLIZUMAB PRIOR TO SAE.
     Route: 041
     Dates: start: 20210323
  2. CABOZANTINIB [Suspect]
     Active Substance: CABOZANTINIB
     Indication: Renal cell carcinoma
     Dosage: DOSE LAST STUDY DRUG ADMIN PRIOR SAE: 40 MG, ON 07/JAN/2022, HE RECEIVED MOST RECENT DOSE OF CABOZAN
     Route: 048
     Dates: start: 20210323
  3. CARZAP HCT [Concomitant]
     Indication: Hypertension
     Route: 048
     Dates: start: 2015
  4. LECALPIN [Concomitant]
     Indication: Hypertension
     Route: 048
     Dates: start: 2005
  5. GLUCOPHAGE [Concomitant]
     Active Substance: METFORMIN HYDROCHLORIDE
     Indication: Type 2 diabetes mellitus
     Route: 048
     Dates: start: 2015
  6. ALLOPURINOL [Concomitant]
     Active Substance: ALLOPURINOL
     Indication: Gout
     Route: 048
     Dates: start: 2017
  7. CARDURA XL [Concomitant]
     Active Substance: DOXAZOSIN MESYLATE
     Indication: Prophylaxis
     Route: 048
     Dates: start: 2005
  8. SPIRONOLACTONE [Concomitant]
     Active Substance: SPIRONOLACTONE
     Indication: Hypertension
     Route: 048
     Dates: start: 202006

REACTIONS (1)
  - Hyperkalaemia [Recovered/Resolved]

NARRATIVE: CASE EVENT DATE: 20220107
